FAERS Safety Report 15044847 (Version 1)
Quarter: 2018Q2

REPORT INFORMATION
  Report Type: Spontaneous
  Country: JP (occurrence: JP)
  Receive Date: 20180621
  Receipt Date: 20180621
  Transmission Date: 20180711
  Serious: Yes (Death)
  Sender: FDA-Public Use
  Company Number: JP-SA-2018SA150717

PATIENT
  Age: 8 Decade
  Sex: Male

DRUGS (1)
  1. CAPRELSA [Suspect]
     Active Substance: VANDETANIB
     Indication: MEDULLARY THYROID CANCER
     Dosage: UNK
     Route: 048
     Dates: start: 201804

REACTIONS (2)
  - Restlessness [Fatal]
  - Decreased appetite [Fatal]

NARRATIVE: CASE EVENT DATE: 201804
